FAERS Safety Report 4709716-0 (Version None)
Quarter: 2005Q2

REPORT INFORMATION
  Report Type: 
  Country: None (occurrence: None)
  Receive Date: 20050629
  Receipt Date: 20050518
  Transmission Date: 20051028
  Serious: No
  Sender: FDA-Public Use
  Company Number: 05P-163-0300726-00

PATIENT
  Age: 73 Year
  Sex: Female

DRUGS (8)
  1. HUMIRA [Suspect]
     Indication: RHEUMATOID ARTHRITIS
     Dosage: 40 MG, 1 2 WK, SUBCUTANEOUS
     Route: 058
     Dates: start: 20050407
  2. PREDNISONE TAB [Concomitant]
  3. METHOTREXATE [Concomitant]
  4. FOLIC ACID [Concomitant]
  5. CELECOXIB [Concomitant]
  6. ARIMIDEX [Concomitant]
  7. OMEPRAZOLE [Concomitant]
  8. POLYCARBOPHIL CALCIUM [Concomitant]

REACTIONS (2)
  - INJECTION SITE ERYTHEMA [None]
  - RASH [None]
